FAERS Safety Report 7814741-7 (Version None)
Quarter: 2011Q4

REPORT INFORMATION
  Report Type: 
  Country: None (occurrence: None)
  Receive Date: 20111014
  Receipt Date: 20111010
  Transmission Date: 20120403
  Serious: Yes (Hospitalization, Other)
  Sender: FDA-Public Use
  Company Number: AU-B.I. PHARMACEUTICALS,INC./RIDGEFIELD-2011-AU-01736AU

PATIENT
  Age: 85 Year

DRUGS (1)
  1. PRADAXA [Suspect]

REACTIONS (2)
  - GASTROINTESTINAL PAIN [None]
  - CEREBROVASCULAR ACCIDENT [None]
